FAERS Safety Report 4900826-1 (Version None)
Quarter: 2006Q1

REPORT INFORMATION
  Report Type: 
  Country: None (occurrence: None)
  Receive Date: 20060113
  Receipt Date: 20051024
  Transmission Date: 20060701
  Serious: No
  Sender: FDA-Public Use
  Company Number: 2005SP002657

PATIENT
  Age: 75 Year
  Sex: Female
  Weight: 65.318 kg

DRUGS (6)
  1. LUNESTA [Suspect]
     Indication: INSOMNIA
     Dosage: SEE IMAGE, ORAL
     Route: 048
     Dates: start: 20050826, end: 20050101
  2. LUNESTA [Suspect]
     Indication: INSOMNIA
     Dosage: SEE IMAGE, ORAL
     Route: 048
     Dates: start: 20051011
  3. ESTROGENS CONJUGATED [Concomitant]
  4. VITAMINS [Concomitant]
  5. XANAX [Concomitant]
  6. INSULIN [Concomitant]

REACTIONS (4)
  - DRUG INEFFECTIVE [None]
  - FATIGUE [None]
  - INSOMNIA [None]
  - SOMNOLENCE [None]
